FAERS Safety Report 12234593 (Version 2)
Quarter: 2016Q2

REPORT INFORMATION
  Report Type: Spontaneous
  Country: FR (occurrence: FR)
  Receive Date: 20160404
  Receipt Date: 20160614
  Transmission Date: 20160815
  Serious: Yes (Death, Other)
  Sender: FDA-Public Use
  Company Number: FR-BRISTOL-MYERS SQUIBB COMPANY-BMS-2016-022112

PATIENT
  Age: 57 Year
  Sex: Male
  Weight: 90 kg

DRUGS (6)
  1. SOFOSBUVIR [Suspect]
     Active Substance: SOFOSBUVIR
     Indication: HEPATITIS C
     Dosage: 400 MG, UNK
     Route: 048
     Dates: start: 20160201, end: 20160314
  2. INEXIUM                            /01479302/ [Concomitant]
     Active Substance: ESOMEPRAZOLE MAGNESIUM
     Indication: DYSPEPSIA
     Dosage: 20 MG, QD
     Route: 048
     Dates: start: 2014
  3. OLYSIO [Suspect]
     Active Substance: SIMEPREVIR
     Indication: HEPATITIS C
     Dosage: 150 MG, UNK
     Route: 048
     Dates: start: 20160201, end: 20160314
  4. PROPANOLOL                         /00030001/ [Concomitant]
     Active Substance: PROPRANOLOL HYDROCHLORIDE
     Indication: OESOPHAGEAL VARICES HAEMORRHAGE
     Dosage: 40 MG, QD
     Route: 048
     Dates: start: 2014
  5. DAKLINZA [Suspect]
     Active Substance: DACLATASVIR
     Indication: HEPATITIS C
     Dosage: 60 MG, UNK
     Route: 048
     Dates: start: 20160201, end: 20160314
  6. RIBAVIRINE [Suspect]
     Active Substance: RIBAVIRIN
     Indication: HEPATITIS C
     Dosage: 1280 MG, UNK
     Route: 048
     Dates: start: 20160201, end: 20160314

REACTIONS (5)
  - Pancreatitis acute [Recovered/Resolved]
  - Ascites [Recovered/Resolved]
  - Sepsis [Fatal]
  - Mitochondrial toxicity [Recovered/Resolved]
  - Renal failure [Recovered/Resolved]

NARRATIVE: CASE EVENT DATE: 20160321
